FAERS Safety Report 8571821-9 (Version None)
Quarter: 2012Q3

REPORT INFORMATION
  Report Type: 
  Country: None (occurrence: None)
  Receive Date: 20120806
  Receipt Date: 20120726
  Transmission Date: 20120928
  Serious: Yes (Hospitalization)
  Sender: FDA-Public Use
  Company Number: JP-JNJFOC-20120609106

PATIENT
  Sex: Male
  Weight: 57 kg

DRUGS (8)
  1. INVEGA [Suspect]
     Indication: SCHIZOPHRENIA, PARANOID TYPE
     Route: 048
     Dates: start: 20111226, end: 20120118
  2. ZOLOFT [Concomitant]
     Indication: SCHIZOPHRENIA, PARANOID TYPE
     Route: 048
     Dates: end: 20120201
  3. NITRAZEPAM [Concomitant]
     Indication: SCHIZOPHRENIA, PARANOID TYPE
     Route: 048
     Dates: end: 20120118
  4. ALPRAZOLAM [Concomitant]
     Indication: SCHIZOPHRENIA, PARANOID TYPE
     Route: 048
     Dates: end: 20120201
  5. SILECE [Concomitant]
     Indication: SCHIZOPHRENIA, PARANOID TYPE
     Route: 048
  6. INVEGA [Suspect]
     Route: 048
     Dates: start: 20120119, end: 20120206
  7. DIAZEPAM [Concomitant]
     Indication: SCHIZOPHRENIA, PARANOID TYPE
     Route: 048
     Dates: start: 20120118
  8. DORAL [Concomitant]
     Indication: SCHIZOPHRENIA, PARANOID TYPE
     Route: 048
     Dates: start: 20120119

REACTIONS (4)
  - INSOMNIA [None]
  - SOMNOLENCE [None]
  - MALAISE [None]
  - ABNORMAL BEHAVIOUR [None]
